FAERS Safety Report 8447075-0 (Version None)
Quarter: 2012Q2

REPORT INFORMATION
  Report Type: 
  Country: None (occurrence: None)
  Receive Date: 20120612
  Receipt Date: 20120604
  Transmission Date: 20120825
  Serious: Yes (Other)
  Sender: FDA-Public Use
  Company Number: GER/GER/12/0024528

PATIENT
  Age: 55 Year
  Sex: Male
  Weight: 88 kg

DRUGS (1)
  1. SIMVASTATIN [Suspect]
     Indication: LOW DENSITY LIPOPROTEIN INCREASED
     Dosage: 20 MG, 1 IN 1 D, ORAL
     Route: 048
     Dates: start: 20110301, end: 20110901

REACTIONS (1)
  - BLOOD CREATINE PHOSPHOKINASE INCREASED [None]
